FAERS Safety Report 16682034 (Version 1)
Quarter: 2019Q3

REPORT INFORMATION
  Report Type: Spontaneous
  Country: US (occurrence: US)
  Receive Date: 20190808
  Receipt Date: 20190808
  Transmission Date: 20191004
  Serious: Yes (Other)
  Sender: FDA-Public Use
  Company Number: US-AKORN PHARMACEUTICALS-2019AKN01626

PATIENT
  Age: 48 Year
  Sex: Female

DRUGS (5)
  1. MYORISAN [Suspect]
     Active Substance: ISOTRETINOIN
     Dosage: 20 MG, 2X/DAY (IN THE MORNING AND EVENING)
     Dates: start: 201902, end: 20190721
  2. PROGESTERONE. [Suspect]
     Active Substance: PROGESTERONE
     Dosage: TAKEN 15 DAYS OUT OF THE MONTH
     Dates: start: 20190715
  3. MYORISAN [Suspect]
     Active Substance: ISOTRETINOIN
     Dosage: 20 MG, 1X/DAY IN THE MORNING
     Dates: start: 20190722, end: 20190722
  4. MYORISAN [Suspect]
     Active Substance: ISOTRETINOIN
     Dosage: 20 MG, 2X/DAY (IN THE MORNING AND EVENING)
     Dates: start: 20190723
  5. PROGESTERONE. [Suspect]
     Active Substance: PROGESTERONE
     Indication: MENSTRUAL DISORDER
     Dosage: TAKEN 15 DAYS OUT OF THE MONTH
     Dates: start: 201905, end: 2019

REACTIONS (7)
  - Lip swelling [Not Recovered/Not Resolved]
  - Menstrual disorder [Not Recovered/Not Resolved]
  - Wheezing [Not Recovered/Not Resolved]
  - Eye swelling [Recovering/Resolving]
  - Pruritus [Recovering/Resolving]
  - Urticaria [Not Recovered/Not Resolved]
  - Intentional product use issue [Recovered/Resolved]

NARRATIVE: CASE EVENT DATE: 20190722
